FAERS Safety Report 17073533 (Version 1)
Quarter: 2019Q4

REPORT INFORMATION
  Report Type: Spontaneous
  Country: DE (occurrence: DE)
  Receive Date: 20191126
  Receipt Date: 20191126
  Transmission Date: 20200122
  Serious: Yes (Hospitalization)
  Sender: FDA-Public Use
  Company Number: DE-AUROBINDO-AUR-APL-2019-074757

PATIENT
  Age: 56 Year
  Sex: Male
  Weight: 117 kg

DRUGS (66)
  1. RAMILICH [Concomitant]
     Active Substance: RAMIPRIL
     Indication: PROPHYLAXIS
     Dosage: UNK
     Route: 065
  2. GRANISETRON ACTAVIS [Concomitant]
     Indication: PROPHYLACTIC CHEMOTHERAPY
     Dosage: 1-2 MILLIGRAM CYCLICAL
     Route: 048
     Dates: start: 20181022
  3. DEXAMETHASON JENAPHARM [Concomitant]
     Active Substance: DEXAMETHASONE
     Indication: PROPHYLACTIC CHEMOTHERAPY
     Dosage: 4-8 MILLIGRAM, CYCLICAL
     Route: 065
     Dates: start: 20181022
  4. FLUOROURACIL. [Suspect]
     Active Substance: FLUOROURACIL
     Dosage: 5400 MILLIGRAM
     Route: 042
     Dates: start: 20191014
  5. VECTIBIX [Suspect]
     Active Substance: PANITUMUMAB
     Dosage: 440 MILLIGRAM
     Route: 042
     Dates: start: 20191014
  6. CLINDAMYCIN RATIOPHARM [Concomitant]
     Active Substance: CLINDAMYCIN PHOSPHATE
     Indication: PROPHYLAXIS
     Dosage: 1800 MILLIGRAM, ONCE A DAY
     Route: 048
     Dates: start: 20181119, end: 20181201
  7. BETAGALEN [Concomitant]
     Indication: RASH
     Dosage: 0.1 UNK, AS NECESSARY
     Route: 061
     Dates: start: 20190527
  8. ERYTHROMYCIN. [Concomitant]
     Active Substance: ERYTHROMYCIN
     Indication: PROPHYLAXIS
     Dosage: 1 UNK, AS NECESSARY
     Route: 061
     Dates: start: 20190306
  9. FOLINIC ACID [Suspect]
     Active Substance: LEUCOVORIN
     Dosage: 700 MILLIGRAM
     Route: 065
     Dates: start: 20190320
  10. FOLINIC ACID [Suspect]
     Active Substance: LEUCOVORIN
     Dosage: 930 MILLIGRAM
     Route: 065
     Dates: start: 20190617
  11. FLUOROURACIL. [Suspect]
     Active Substance: FLUOROURACIL
     Dosage: 700 MILLIGRAM
     Route: 040
     Dates: start: 20190320
  12. FLUOROURACIL. [Suspect]
     Active Substance: FLUOROURACIL
     Dosage: 925 MILLIGRAM
     Route: 040
     Dates: start: 20190527
  13. FLUOROURACIL. [Suspect]
     Active Substance: FLUOROURACIL
     Dosage: 4300 MILLIGRAM
     Route: 042
     Dates: start: 20190320
  14. FLUOROURACIL. [Suspect]
     Active Substance: FLUOROURACIL
     Dosage: 5500 MILLIGRAM
     Route: 042
     Dates: start: 20190916
  15. AMLODIPIN RATIOPHARM [Concomitant]
     Indication: PROPHYLAXIS
     Dosage: UNK
     Route: 065
  16. AMLODIPIN RATIOPHARM [Concomitant]
     Indication: HYPERTENSION
     Dosage: 5 MILLIGRAM, ONCE A DAY
     Route: 048
     Dates: start: 20100615, end: 20190420
  17. ERYTHROMYCIN. [Concomitant]
     Active Substance: ERYTHROMYCIN
     Indication: RASH
     Dosage: 1 UNK, AS NECESSARY
     Route: 061
     Dates: start: 20181214
  18. CELESTAN [Concomitant]
     Active Substance: BETAMETHASONE
     Indication: PROPHYLAXIS
     Dosage: 100 MILLIGRAM, AS NECESSARY
     Route: 061
     Dates: start: 20190304
  19. OXALIPLATIN. [Suspect]
     Active Substance: OXALIPLATIN
     Dosage: 195 MILLIGRAM
     Route: 065
     Dates: start: 20190401
  20. FLUOROURACIL. [Suspect]
     Active Substance: FLUOROURACIL
     Dosage: 900 MILLIGRAM
     Route: 040
     Dates: start: 20191014
  21. FLUOROURACIL. [Suspect]
     Active Substance: FLUOROURACIL
     Dosage: 925 MILLIGRAM
     Route: 042
     Dates: start: 20190902
  22. VECTIBIX [Suspect]
     Active Substance: PANITUMUMAB
     Indication: COLORECTAL CANCER METASTATIC
     Dosage: 700 MILLIGRAM
     Route: 042
     Dates: start: 20181119
  23. VECTIBIX [Suspect]
     Active Substance: PANITUMUMAB
     Dosage: 370 MILLIGRAM
     Route: 042
     Dates: start: 20190320
  24. VECTIBIX [Suspect]
     Active Substance: PANITUMUMAB
     Dosage: 700 MILLIGRAM
     Route: 042
     Dates: start: 20190401
  25. VECTIBIX [Suspect]
     Active Substance: PANITUMUMAB
     Dosage: 500 MILLIGRAM
     Route: 042
     Dates: start: 20190819
  26. HYALURONATE SODIUM [Concomitant]
     Active Substance: HYALURONATE SODIUM
     Indication: EYE DISORDER PROPHYLAXIS
     Dosage: 1 UNK, BID
     Route: 061
     Dates: start: 20190729
  27. DOXYCYCLIN [Concomitant]
     Active Substance: DOXYCYCLINE
     Indication: RASH
     Dosage: 100 MILLIGRAM, BID
     Route: 048
     Dates: start: 20190315
  28. FORTIMEL [Concomitant]
     Active Substance: DIETARY SUPPLEMENT
     Indication: PROPHYLAXIS
     Dosage: 1 UNK, TID
     Route: 048
     Dates: start: 20191014
  29. FOLINIC ACID [Suspect]
     Active Substance: LEUCOVORIN
     Indication: COLORECTAL CANCER METASTATIC
     Dosage: 920 MILLIGRAM
     Route: 065
     Dates: start: 20181119
  30. FOLINIC ACID [Suspect]
     Active Substance: LEUCOVORIN
     Dosage: 920 MILLIGRAM
     Route: 065
     Dates: start: 20190527
  31. OXALIPLATIN. [Suspect]
     Active Substance: OXALIPLATIN
     Indication: COLORECTAL CANCER METASTATIC
     Dosage: 195 MILLIGRAM
     Route: 065
     Dates: start: 20181119
  32. OXALIPLATIN. [Suspect]
     Active Substance: OXALIPLATIN
     Dosage: 150 MILLIGRAM
     Route: 065
     Dates: start: 20190320
  33. FLUOROURACIL. [Suspect]
     Active Substance: FLUOROURACIL
     Dosage: 925 MILLIGRAM
     Route: 040
     Dates: start: 20190401
  34. FLUOROURACIL. [Suspect]
     Active Substance: FLUOROURACIL
     Dosage: 5500 MILLIGRAM
     Route: 042
     Dates: start: 20190527
  35. VECTIBIX [Suspect]
     Active Substance: PANITUMUMAB
     Dosage: 640 MILLIGRAM
     Route: 042
     Dates: start: 20190513
  36. VECTIBIX [Suspect]
     Active Substance: PANITUMUMAB
     Dosage: 460 MILLIGRAM
     Route: 042
     Dates: start: 20190527
  37. LIQUIFILM [Concomitant]
     Indication: PROPHYLAXIS
     Dosage: 1 UNK, AS NECESSARY
     Route: 061
     Dates: start: 20181214
  38. ALLOPURINOL RATIOPHARM [Concomitant]
     Active Substance: ALLOPURINOL
     Indication: BLOOD URIC ACID INCREASED
     Dosage: 150 MILLIGRAM, ONCE A DAY
     Route: 048
     Dates: start: 19980615
  39. POLYSORBATE 20. [Concomitant]
     Active Substance: POLYSORBATE 20
     Indication: RASH
     Dosage: 1 UNK, AS NECESSARY
     Route: 061
     Dates: start: 20190328
  40. FOLINIC ACID [Suspect]
     Active Substance: LEUCOVORIN
     Dosage: 920 MILLIGRAM
     Route: 065
     Dates: start: 20181217
  41. FLUOROURACIL. [Suspect]
     Active Substance: FLUOROURACIL
     Dosage: 900 MILLIGRAM
     Route: 040
     Dates: start: 20190429
  42. FLUOROURACIL. [Suspect]
     Active Substance: FLUOROURACIL
     Dosage: 5500 MILLIGRAM
     Route: 040
     Dates: start: 20190902
  43. VECTIBIX [Suspect]
     Active Substance: PANITUMUMAB
     Dosage: 470 MILLIGRAM
     Route: 042
     Dates: start: 20190701
  44. VECTIBIX [Suspect]
     Active Substance: PANITUMUMAB
     Dosage: 490 MILLIGRAM
     Route: 042
     Dates: start: 20190916
  45. METFORMIN [Concomitant]
     Active Substance: METFORMIN HYDROCHLORIDE
     Indication: DIABETES MELLITUS
     Dosage: 50-1000 MILLIGRAM, BID
     Route: 065
  46. DOXYCYCLIN RATIOPHARM [Concomitant]
     Indication: PROPHYLAXIS
     Dosage: 200 MILLIGRAM, ONCE A DAY (100 MILLIGRAM, BID)
     Route: 048
     Dates: start: 20181214
  47. LANTUS [Concomitant]
     Active Substance: INSULIN GLARGINE
     Indication: DIABETES MELLITUS
     Dosage: 6 UNK, QD
     Route: 058
     Dates: start: 20190115
  48. FOLINIC ACID [Suspect]
     Active Substance: LEUCOVORIN
     Dosage: 930 MILLIGRAM
     Route: 065
     Dates: start: 20190401
  49. FLUOROURACIL. [Suspect]
     Active Substance: FLUOROURACIL
     Dosage: 925 MILLIGRAM
     Route: 040
     Dates: start: 20190916
  50. VECTIBIX [Suspect]
     Active Substance: PANITUMUMAB
     Dosage: 480 MILLIGRAM
     Route: 042
     Dates: start: 20190902
  51. VECTIBIX [Suspect]
     Active Substance: PANITUMUMAB
     Dosage: 480 MILLIGRAM
     Route: 042
     Dates: start: 20190930
  52. CALCIUM D3 [Concomitant]
     Active Substance: CALCIUM\CHOLECALCIFEROL
     Indication: PROPHYLAXIS
     Dosage: 1000 MILLIGRAM, ONCE A DAY (500 MILLIGRAM, BID)
     Route: 048
     Dates: start: 20190418
  53. METRONIDAZOLE. [Concomitant]
     Active Substance: METRONIDAZOLE
     Indication: RASH
     Dosage: 1 UNK, AS NECESSARY
     Route: 061
     Dates: start: 20190328
  54. METRONIDAZOLE SODIUM [Concomitant]
     Active Substance: METRONIDAZOLE SODIUM
     Indication: SKIN DISORDER PROPHYLAXIS
     Dosage: 1 MILLIGRAM, AS NECESSARY
     Route: 061
     Dates: start: 20190218
  55. FOLINIC ACID [Suspect]
     Active Substance: LEUCOVORIN
     Dosage: 900 MILLIGRAM
     Route: 065
     Dates: start: 20190429
  56. FOLINIC ACID [Suspect]
     Active Substance: LEUCOVORIN
     Dosage: 900 MILLIGRAM
     Route: 065
     Dates: start: 20191014
  57. FLUOROURACIL. [Suspect]
     Active Substance: FLUOROURACIL
     Indication: COLORECTAL CANCER METASTATIC
     Dosage: 925 MILLIGRAM
     Route: 040
     Dates: start: 20181119
  58. FLUOROURACIL. [Suspect]
     Active Substance: FLUOROURACIL
     Indication: COLORECTAL CANCER METASTATIC
     Dosage: 5500 MILLIGRAM
     Route: 042
     Dates: start: 20181119
  59. FLUOROURACIL. [Suspect]
     Active Substance: FLUOROURACIL
     Dosage: 5600 MILLIGRAM
     Route: 042
     Dates: start: 20190401
  60. FLUOROURACIL. [Suspect]
     Active Substance: FLUOROURACIL
     Dosage: 5450 MILLIGRAM
     Route: 042
     Dates: start: 20190429
  61. RAMILICH [Concomitant]
     Active Substance: RAMIPRIL
     Indication: HYPERTENSION
     Dosage: 5 MILLIGRAM, ONCE A DAY
     Route: 048
     Dates: start: 20100615, end: 20190420
  62. GRANISETRON B. BRAUN [Concomitant]
     Active Substance: GRANISETRON HYDROCHLORIDE
     Indication: PROPHYLACTIC CHEMOTHERAPY
     Dosage: 1 MILLIGRAM, CYCLICAL
     Route: 042
     Dates: start: 20181022
  63. VELMETIA [Concomitant]
     Active Substance: METFORMIN\SITAGLIPTIN
     Indication: DIABETES MELLITUS
     Dosage: 1000 MILLIGRAM, QD, BID
     Route: 048
     Dates: start: 20120615
  64. FOLINIC ACID [Suspect]
     Active Substance: LEUCOVORIN
     Dosage: 195 MILLIGRAM
     Route: 065
     Dates: start: 20181203
  65. FOLINIC ACID [Suspect]
     Active Substance: LEUCOVORIN
     Dosage: 920 MILLIGRAM
     Route: 065
     Dates: start: 20190701
  66. OXALIPLATIN. [Suspect]
     Active Substance: OXALIPLATIN
     Dosage: 190 MILLIGRAM
     Route: 065
     Dates: start: 20190429

REACTIONS (1)
  - Functional gastrointestinal disorder [Recovering/Resolving]

NARRATIVE: CASE EVENT DATE: 20191022
